FAERS Safety Report 19750087 (Version 1)
Quarter: 2021Q3

REPORT INFORMATION
  Report Type: Report from Study
  Country: US (occurrence: US)
  Receive Date: 20210826
  Receipt Date: 20210826
  Transmission Date: 20211014
  Serious: Yes (Death)
  Sender: FDA-Public Use
  Company Number: US-ASTRAZENECA-2021A695392

PATIENT
  Age: 26482 Day
  Sex: Male
  Weight: 112.5 kg

DRUGS (20)
  1. LANTUS SOLOSTAR [Concomitant]
     Active Substance: INSULIN GLARGINE
  2. ACCU?CHEK SOFTCLIX LANCET [Concomitant]
  3. LIDOCAINE?PRILOCAINE [Concomitant]
     Active Substance: LIDOCAINE\PRILOCAINE
  4. HEPARIN IN NACL [Concomitant]
  5. AMBIEN [Concomitant]
     Active Substance: ZOLPIDEM TARTRATE
  6. PHOSLO [Concomitant]
     Active Substance: CALCIUM ACETATE
  7. CARVEDILOL. [Concomitant]
     Active Substance: CARVEDILOL
  8. LANSOPRAZOLE. [Concomitant]
     Active Substance: LANSOPRAZOLE
  9. GABAPETIN [Concomitant]
     Active Substance: GABAPENTIN
  10. MIDODRINE HCL [Concomitant]
     Active Substance: MIDODRINE HYDROCHLORIDE
  11. ACCU?CHEK AVIVA PLUS [Concomitant]
  12. AMIODORONE HCL [Concomitant]
  13. LASIX [Concomitant]
     Active Substance: FUROSEMIDE
  14. NORCO [Concomitant]
     Active Substance: ACETAMINOPHEN\HYDROCODONE BITARTRATE
  15. HUMALOG [Concomitant]
     Active Substance: INSULIN LISPRO
  16. CALQUENCE [Suspect]
     Active Substance: ACALABRUTINIB
     Indication: CHRONIC LYMPHOCYTIC LEUKAEMIA
     Route: 048
  17. ELIQUIS [Concomitant]
     Active Substance: APIXABAN
  18. MIRCERA [Concomitant]
     Active Substance: METHOXY POLYETHYLENE GLYCOL-EPOETIN BETA
  19. PC UNIFINE PENTIPS [Concomitant]
  20. FUROSEMIDE. [Concomitant]
     Active Substance: FUROSEMIDE

REACTIONS (3)
  - Death [Fatal]
  - Asthenia [Not Recovered/Not Resolved]
  - Lethargy [Not Recovered/Not Resolved]

NARRATIVE: CASE EVENT DATE: 20210817
